FAERS Safety Report 18371836 (Version 2)
Quarter: 2021Q3

REPORT INFORMATION
  Report Type: Report from Study
  Country: IT (occurrence: IT)
  Receive Date: 20201012
  Receipt Date: 20210909
  Transmission Date: 20211014
  Serious: Yes (Death, Hospitalization, Other)
  Sender: FDA-Public Use
  Company Number: IT-INCYTE CORPORATION-2018IN005973

PATIENT

DRUGS (5)
  1. DILATREND [Concomitant]
     Active Substance: CARVEDILOL
     Indication: HYPERTENSION
     Dosage: 6.25 MG, QD
     Route: 048
     Dates: start: 20171127
  2. JAKAVI [Suspect]
     Active Substance: RUXOLITINIB
     Dosage: 15 OT
     Route: 065
     Dates: start: 20180509, end: 20190511
  3. EUTIMIL [Concomitant]
     Active Substance: PAROXETINE HYDROCHLORIDE
     Indication: DEPRESSION
     Dosage: 20 MG, QD
     Route: 048
     Dates: start: 201407
  4. RETACRIT [Concomitant]
     Active Substance: EPOETIN ALFA-EPBX
     Indication: ANAEMIA
     Dosage: 40000 U/L, QW
     Route: 058
     Dates: start: 20171003
  5. JAKAVI [Suspect]
     Active Substance: RUXOLITINIB
     Indication: MYELOFIBROSIS
     Dosage: 30 OT
     Route: 065
     Dates: start: 20171220, end: 20180508

REACTIONS (19)
  - Leukocytosis [Unknown]
  - Basophil count increased [Unknown]
  - Headache [Unknown]
  - White blood cell count increased [Unknown]
  - Malignant neoplasm progression [Fatal]
  - General physical health deterioration [Not Recovered/Not Resolved]
  - Lymphocyte percentage increased [Unknown]
  - Red blood cell count decreased [Unknown]
  - Lymphocyte count increased [Unknown]
  - Monocyte percentage increased [Unknown]
  - Monocyte count increased [Unknown]
  - Pyrexia [Unknown]
  - Neutrophil count decreased [Unknown]
  - Pneumonia [Not Recovered/Not Resolved]
  - Haematocrit decreased [Unknown]
  - Neutrophil percentage decreased [Unknown]
  - Platelet count decreased [Unknown]
  - Haemoglobin decreased [Unknown]
  - Myelofibrosis [Fatal]

NARRATIVE: CASE EVENT DATE: 20180413
